FAERS Safety Report 15068463 (Version 2)
Quarter: 2019Q4

REPORT INFORMATION
  Report Type: Spontaneous
  Country: IT (occurrence: IT)
  Receive Date: 20180626
  Receipt Date: 20191111
  Transmission Date: 20200122
  Serious: Yes (Other)
  Sender: FDA-Public Use
  Company Number: IT-MYLANLABS-2018M1044400

PATIENT
  Age: 42 Year
  Sex: Male

DRUGS (7)
  1. EMTRICITABINE/TENOFOVIR DISOPROXIL FUMARATE [Suspect]
     Active Substance: EMTRICITABINE\TENOFOVIR DISOPROXIL FUMARATE
     Indication: HIV INFECTION
     Dosage: UNK
     Route: 065
  2. TACROLIMUS. [Interacting]
     Active Substance: TACROLIMUS
     Indication: HIV INFECTION
     Dosage: UNK
     Route: 065
  3. EVEROLIMUS. [Interacting]
     Active Substance: EVEROLIMUS
     Indication: HIV INFECTION
     Dosage: UNK
     Route: 065
  4. EMTRICITABINE/TENOFOVIR DISOPROXIL FUMARATE [Interacting]
     Active Substance: EMTRICITABINE\TENOFOVIR DISOPROXIL FUMARATE
     Dosage: UNK
     Route: 065
     Dates: start: 2008, end: 2009
  5. TACROLIMUS. [Interacting]
     Active Substance: TACROLIMUS
     Dosage: UNK
     Route: 065
     Dates: start: 2008
  6. EVEROLIMUS. [Interacting]
     Active Substance: EVEROLIMUS
     Dosage: UNK
     Route: 065
     Dates: start: 2008
  7. FOSAMPRENAVIR CALCIUM. [Interacting]
     Active Substance: FOSAMPRENAVIR CALCIUM
     Indication: HIV INFECTION
     Dosage: UNK
     Route: 065

REACTIONS (9)
  - Aspartate aminotransferase increased [Recovering/Resolving]
  - Transplant rejection [Recovering/Resolving]
  - Gamma-glutamyltransferase increased [Recovering/Resolving]
  - Toxicity to various agents [Recovering/Resolving]
  - Drug interaction [Unknown]
  - Hepatic necrosis [Recovering/Resolving]
  - Immunosuppressant drug level decreased [Recovering/Resolving]
  - Alanine aminotransferase increased [Recovering/Resolving]
  - Blood alkaline phosphatase increased [Recovering/Resolving]

NARRATIVE: CASE EVENT DATE: 200902
